FAERS Safety Report 6418800-5 (Version None)
Quarter: 2009Q4

REPORT INFORMATION
  Report Type: 
  Country: None (occurrence: None)
  Receive Date: 20091026
  Receipt Date: 20091012
  Transmission Date: 20100525
  Serious: Yes (Hospitalization)
  Sender: FDA-Public Use
  Company Number: 89590

PATIENT
  Age: 60 Year
  Sex: Male
  Weight: 108 kg

DRUGS (1)
  1. ACYCLOVIR [Suspect]
     Indication: ENCEPHALITIS HERPES
     Dosage: 1G IV OVER 60 MINUTES EVERY 8 HOURS
     Route: 042

REACTIONS (4)
  - MEDICATION ERROR [None]
  - NEPHROPATHY TOXIC [None]
  - OVERDOSE [None]
  - RENAL FAILURE ACUTE [None]
